FAERS Safety Report 7490182-X (Version None)
Quarter: 2011Q2

REPORT INFORMATION
  Report Type: 
  Country: None (occurrence: None)
  Receive Date: 20110519
  Receipt Date: 20110421
  Transmission Date: 20111010
  Serious: Yes (Other)
  Sender: FDA-Public Use
  Company Number: US-BAYER-201030375NA

PATIENT
  Age: 25 Year
  Sex: Female
  Weight: 53.061 kg

DRUGS (8)
  1. YAZ [Suspect]
     Indication: ACNE
     Dosage: UNK UNK, UNK
     Route: 048
     Dates: start: 20080101, end: 20081101
  2. MYLANTA [Concomitant]
  3. CARAFATE [Concomitant]
     Dosage: UNK UNK, QID
  4. PROTONIX [Concomitant]
     Indication: GASTRITIS
     Dosage: 40 MG, UNK
     Route: 048
     Dates: start: 20080208
  5. IMODIUM [Concomitant]
  6. LEVSIN [Concomitant]
     Indication: ABDOMINAL PAIN
     Dosage: 0.125 MG, UNK
  7. ATIVAN [Concomitant]
     Indication: ANXIETY
     Dosage: 0.5 MG, PRN
     Route: 048
     Dates: start: 20081105
  8. PEPCID [Concomitant]

REACTIONS (5)
  - CHOLECYSTITIS CHRONIC [None]
  - NAUSEA [None]
  - PROCEDURAL PAIN [None]
  - ABDOMINAL PAIN UPPER [None]
  - ABDOMINAL PAIN [None]
